FAERS Safety Report 4576294-9 (Version None)
Quarter: 2005Q1

REPORT INFORMATION
  Report Type: 
  Country: None (occurrence: None)
  Receive Date: 20050207
  Receipt Date: 20050124
  Transmission Date: 20050727
  Serious: Yes (Life-Threatening)
  Sender: FDA-Public Use
  Company Number: 2004120956

PATIENT
  Age: 45 Year
  Sex: Female

DRUGS (21)
  1. CELEBREX [Suspect]
     Indication: RHEUMATOID ARTHRITIS
     Dosage: ORAL
     Route: 048
  2. SALBUTAMOL (SALBUTAMOL) [Concomitant]
  3. IPRATROPIUM BROMIDE [Concomitant]
  4. ACETYLSALICYLIC ACID SRT [Concomitant]
  5. METHOTREXATE [Concomitant]
  6. FOLIC ACID [Concomitant]
  7. SYMBICORT TURBUHALER ^DRACO^ (BUDESONIDE, FORMOTEROL FUMARATE) [Concomitant]
  8. MONTELUKAST (MONTELUKAST) [Concomitant]
  9. FUROSEMIDE (FUROSEMIDE) [Concomitant]
  10. DOTHIEPIN HYDROCHLORIDE [Concomitant]
  11. TRAMADOL HCL [Concomitant]
  12. ACETAMINOPHEN [Concomitant]
  13. SENNA (SENNA) [Concomitant]
  14. DOCUSATE SODIUM (DOCUSATE SODIUM) [Concomitant]
  15. NIFEDIPINE [Concomitant]
  16. DIAZEPAM [Concomitant]
  17. ETORICOXIB (ETORICOXIB) [Concomitant]
  18. LANSOPRAZOLE [Concomitant]
  19. THEOPHYLLINE [Concomitant]
  20. PREDNISONE [Concomitant]
  21. CODEINE PHOSPHATE AND ACETAMINOPHEN [Concomitant]

REACTIONS (4)
  - ASTHMA [None]
  - CONDITION AGGRAVATED [None]
  - RASH [None]
  - RHEUMATOID ARTHRITIS [None]
